FAERS Safety Report 16703984 (Version 2)
Quarter: 2019Q3

REPORT INFORMATION
  Report Type: Spontaneous
  Country: IT (occurrence: IT)
  Receive Date: 20190814
  Receipt Date: 20190828
  Transmission Date: 20191004
  Serious: Yes (Hospitalization, Other)
  Sender: FDA-Public Use
  Company Number: IT-VERTEX PHARMACEUTICALS-2019-007548

PATIENT
  Sex: Male

DRUGS (16)
  1. DIBASE [Concomitant]
     Active Substance: CHOLECALCIFEROL
     Dosage: 25000 INTERNATIONAL UNIT, 1 WEEK
  2. RIOPAN [PIROXICAM] [Concomitant]
     Active Substance: PIROXICAM
     Dosage: 1 BUST, PRN
  3. STERIMAR [SODIUM CHLORIDE;WATER] [Concomitant]
     Dosage: BID
  4. DEURSIL [Concomitant]
     Active Substance: URSODIOL
     Dosage: 300 MG, BID
  5. COLFINAIR [Concomitant]
  6. NEXIUM I.V. [Concomitant]
     Active Substance: ESOMEPRAZOLE SODIUM
     Dosage: 40 MG QAM BEFORE BREAKFAST
  7. MOVICOL [MACROGOL;POTASSIUM CHLORIDE;SODIUM BICARBONATE;SODIUM CHLORID [Concomitant]
     Dosage: 4SACHETS IN AM IN 500 CC OF WATER + 2 SACHETS IN PM IN 500CC OF WATER , BID
  8. CREON [Concomitant]
     Active Substance: PANCRELIPASE AMYLASE\PANCRELIPASE LIPASE\PANCRELIPASE PROTEASE
     Dosage: 3-4 DOSAGE FORM WITH MEALS
  9. ZITROMAX [Concomitant]
     Active Substance: AZITHROMYCIN
     Dosage: 1 DOSAGE FORM, 500 MG, QD, THRICE A WEEK (M-W-F)
  10. FLIXONASE [Concomitant]
     Active Substance: FLUTICASONE PROPIONATE
     Dosage: 2 SPRAY , QD FOR 15 DAY CYCLES
     Route: 045
  11. SELG [Concomitant]
  12. TRIMBOW [Concomitant]
     Active Substance: BECLOMETHASONE DIPROPIONATE\FORMOTEROL FUMARATE\GLYCOPYRROLATE
     Dosage: 2 PUFFS, BID
  13. SEREUPIN [Concomitant]
     Active Substance: PAROXETINE HYDROCHLORIDE
     Dosage: 20 MG, QAM
  14. XANAX [Concomitant]
     Active Substance: ALPRAZOLAM
     Dosage: TID
  15. ORKAMBI [Suspect]
     Active Substance: IVACAFTOR\LUMACAFTOR
     Indication: CYSTIC FIBROSIS
     Dosage: 200/ 125MG TABLETS, BID
     Route: 048
     Dates: start: 20160722
  16. PULMOZYME [Concomitant]
     Active Substance: DORNASE ALFA
     Dosage: QD
     Route: 055

REACTIONS (2)
  - Infective pulmonary exacerbation of cystic fibrosis [Unknown]
  - Distal intestinal obstruction syndrome [Unknown]
